FAERS Safety Report 5194121-6 (Version None)
Quarter: 2006Q4

REPORT INFORMATION
  Report Type: 
  Country: None (occurrence: None)
  Receive Date: 20061226
  Receipt Date: 20061215
  Transmission Date: 20070319
  Serious: Yes (Other)
  Sender: FDA-Public Use
  Company Number: PHO-2006-051

PATIENT
  Age: 34 Year
  Sex: Female

DRUGS (1)
  1. PHOTOFRIN [Suspect]
     Indication: LUNG NEOPLASM MALIGNANT
     Dosage: 167MG IV
     Route: 042
     Dates: start: 20061212, end: 20061212

REACTIONS (1)
  - HYPOXIA [None]
